FAERS Safety Report 8933756 (Version 1)
Quarter: 2012Q4

REPORT INFORMATION
  Report Type: 
  Country: US (occurrence: US)
  Receive Date: 20121129
  Receipt Date: 20121129
  Transmission Date: 20130627
  Serious: Yes (Other)
  Sender: FDA-Public Use
  Company Number: US-ELI_LILLY_AND_COMPANY-US201211006109

PATIENT
  Age: 62 Year
  Sex: Female

DRUGS (3)
  1. CYMBALTA [Suspect]
     Indication: BACK PAIN
     Dosage: 30 mg, qd
     Dates: start: 20120907, end: 20120913
  2. CYMBALTA [Suspect]
     Dosage: 60 mg, qd
     Dates: start: 20120914
  3. CYMBALTA [Suspect]
     Dosage: 30 mg, qd

REACTIONS (5)
  - Aspartate aminotransferase increased [Unknown]
  - Alanine aminotransferase [Unknown]
  - Blood pressure increased [Unknown]
  - Headache [Recovered/Resolved]
  - Musculoskeletal chest pain [Unknown]
